FAERS Safety Report 5633671-2 (Version None)
Quarter: 2008Q1

REPORT INFORMATION
  Report Type: 
  Country: None (occurrence: None)
  Receive Date: 20080219
  Receipt Date: 20080201
  Transmission Date: 20080703
  Serious: No
  Sender: FDA-Public Use
  Company Number: US022593

PATIENT
  Sex: Female

DRUGS (2)
  1. FENTORA [Suspect]
     Indication: MIGRAINE
     Dosage: PRN BUCCAL
     Route: 002
  2. ROXICODONE [Concomitant]

REACTIONS (1)
  - NO ADVERSE EVENT [None]
